FAERS Safety Report 10081587 (Version 1)
Quarter: 2014Q2

REPORT INFORMATION
  Report Type: Spontaneous
  Country: US (occurrence: US)
  Receive Date: 20140416
  Receipt Date: 20140416
  Transmission Date: 20141212
  Serious: Yes (Other)
  Sender: FDA-Public Use
  Company Number: US-PFIZER INC-2014103981

PATIENT
  Age: 55 Year
  Sex: Female
  Weight: 99.77 kg

DRUGS (2)
  1. PREMARIN [Suspect]
     Dosage: 0.625 MG, DAILY
     Dates: start: 198806
  2. PREMARIN [Suspect]
     Dosage: 0.625 MG, DAILY
     Dates: start: 2013

REACTIONS (1)
  - Hypertension [Not Recovered/Not Resolved]
